FAERS Safety Report 20786551 (Version 1)
Quarter: 2022Q2

REPORT INFORMATION
  Report Type: Spontaneous
  Country: FR (occurrence: FR)
  Receive Date: 20220505
  Receipt Date: 20220505
  Transmission Date: 20220721
  Serious: Yes (Other)
  Sender: FDA-Public Use
  Company Number: None

PATIENT
  Age: 70 Year
  Sex: Female
  Weight: 50 kg

DRUGS (5)
  1. CAPECITABINE [Suspect]
     Active Substance: CAPECITABINE
     Indication: Breast cancer stage IV
     Route: 048
     Dates: start: 202102
  2. LYRICA [Concomitant]
     Active Substance: PREGABALIN
     Indication: Cancer pain
     Route: 048
  3. LEVOTHYROXINE SODIUM [Concomitant]
     Active Substance: LEVOTHYROXINE SODIUM
     Indication: Post procedural hypothyroidism
     Route: 048
  4. SKENAN [Concomitant]
     Active Substance: MORPHINE SULFATE
     Indication: Cancer pain
     Route: 048
  5. LAROXYL ROCHE 40 mg/ml, solution buvable [Concomitant]
     Indication: Cancer pain
     Route: 048

REACTIONS (1)
  - Aortic arteriosclerosis [Not Recovered/Not Resolved]

NARRATIVE: CASE EVENT DATE: 20220322
